FAERS Safety Report 23241644 (Version 1)
Quarter: 2023Q4

REPORT INFORMATION
  Report Type: Spontaneous
  Country: FR (occurrence: FR)
  Receive Date: 20231129
  Receipt Date: 20231129
  Transmission Date: 20240109
  Serious: Yes (Hospitalization)
  Sender: FDA-Public Use
  Company Number: None

PATIENT
  Age: 50 Year
  Sex: Male

DRUGS (9)
  1. CLOZAPINE [Interacting]
     Active Substance: CLOZAPINE
     Indication: Schizophrenia
     Dosage: 350 MILLIGRAM, QD
     Route: 048
     Dates: end: 20231102
  2. CITALOPRAM [Interacting]
     Active Substance: CITALOPRAM HYDROBROMIDE
     Indication: Depression
     Dosage: 40 MILLIGRAM, QD
     Route: 048
     Dates: end: 20231023
  3. ZONEGRAN [Interacting]
     Active Substance: ZONISAMIDE
     Indication: Epilepsy
     Dosage: 200 MILLIGRAM, QD
     Route: 048
     Dates: end: 20231025
  4. KEPPRA [Interacting]
     Active Substance: LEVETIRACETAM
     Indication: Epilepsy
     Dosage: SEE COMMENTS
     Route: 048
     Dates: end: 20231027
  5. VALPROATE SODIUM [Interacting]
     Active Substance: VALPROATE SODIUM
     Indication: Epilepsy
     Dosage: 250 MILLIGRAM, QD
     Route: 048
     Dates: start: 20231005, end: 20231102
  6. LOXAPINE [Interacting]
     Active Substance: LOXAPINE
     Indication: Psychotic disorder
     Dosage: 50 MILLIGRAM, QD
     Route: 048
     Dates: end: 20231013
  7. LAMICTAL [Interacting]
     Active Substance: LAMOTRIGINE
     Indication: Epilepsy
     Dosage: 400 MILLIGRAM, QD
     Route: 048
     Dates: end: 20231024
  8. LAMICTAL [Interacting]
     Active Substance: LAMOTRIGINE
     Dosage: REDUCED DOSAGE
     Route: 048
     Dates: start: 20231025
  9. TRIMEPRAZINE [Interacting]
     Active Substance: TRIMEPRAZINE
     Indication: Insomnia
     Dosage: 15 MILLIGRAM, QD (ORAL SOLUTION IN DROPS)
     Route: 048
     Dates: end: 20231013

REACTIONS (5)
  - Apathy [Recovered/Resolved]
  - Somnolence [Recovered/Resolved]
  - Ataxia [Recovered/Resolved]
  - Confusional state [Recovered/Resolved]
  - Drug interaction [Unknown]

NARRATIVE: CASE EVENT DATE: 20231008
